FAERS Safety Report 23290569 (Version 3)
Quarter: 2024Q2

REPORT INFORMATION
  Report Type: Spontaneous
  Country: CA (occurrence: None)
  Receive Date: 20231213
  Receipt Date: 20240531
  Transmission Date: 20240716
  Serious: Yes (Other)
  Sender: FDA-Public Use
  Company Number: CA-MLMSERVICE-20231201-4694971-1

PATIENT
  Age: 84 Year
  Sex: Male

DRUGS (2)
  1. METHOTREXATE [Suspect]
     Active Substance: METHOTREXATE
     Indication: Rheumatoid arthritis
     Dates: start: 2014
  2. HYDROXYCHLOROQUINE [Suspect]
     Active Substance: HYDROXYCHLOROQUINE
     Indication: Rheumatoid arthritis
     Dates: start: 2014

REACTIONS (5)
  - Type 1 lepra reaction [Recovering/Resolving]
  - Infection reactivation [Recovering/Resolving]
  - Borderline leprosy [Recovering/Resolving]
  - Peripheral sensorimotor neuropathy [Not Recovered/Not Resolved]
  - Mononeuropathy multiplex [Not Recovered/Not Resolved]

NARRATIVE: CASE EVENT DATE: 20180901
